FAERS Safety Report 8177632-0 (Version None)
Quarter: 2012Q1

REPORT INFORMATION
  Report Type: 
  Country: None (occurrence: None)
  Receive Date: 20120301
  Receipt Date: 20120222
  Transmission Date: 20120608
  Serious: Yes (Life-Threatening)
  Sender: FDA-Public Use
  Company Number: PHHY2012FR016067

PATIENT
  Sex: Female

DRUGS (5)
  1. NAROPIN [Suspect]
     Dosage: UNK
     Route: 042
     Dates: start: 20100423, end: 20100423
  2. SYNTOCINON [Suspect]
     Dosage: UNK
     Route: 042
     Dates: start: 20100423, end: 20100423
  3. OMEPRAZOLE [Suspect]
     Dosage: 2 DF, UNK
     Dates: start: 20100423, end: 20100423
  4. SUFENTA PRESERVATIVE FREE [Suspect]
     Dosage: UNK
     Route: 042
     Dates: start: 20100423, end: 20100423
  5. NALADOR [Suspect]
     Dosage: UNK
     Route: 042
     Dates: start: 20100423, end: 20100423

REACTIONS (4)
  - CARDIAC FAILURE [None]
  - RESPIRATORY DISTRESS [None]
  - ACUTE PULMONARY OEDEMA [None]
  - TROPONIN INCREASED [None]
